FAERS Safety Report 6738313-0 (Version None)
Quarter: 2010Q2

REPORT INFORMATION
  Report Type: 
  Country: None (occurrence: None)
  Receive Date: 20100524
  Receipt Date: 20100514
  Transmission Date: 20101027
  Serious: Yes (Hospitalization)
  Sender: FDA-Public Use
  Company Number: JP-MERCK-0911USA02341

PATIENT
  Age: 75 Year
  Sex: Female

DRUGS (5)
  1. FOSAMAX [Suspect]
     Indication: OSTEOPOROSIS
     Route: 048
     Dates: start: 20090223, end: 20091009
  2. RIKKUNSHI-TO [Concomitant]
     Route: 048
     Dates: end: 20091009
  3. AMLODIPINE [Concomitant]
     Indication: HYPERTENSION
     Route: 048
     Dates: end: 20091009
  4. EVOXAC [Concomitant]
     Indication: SJOGREN'S SYNDROME
     Route: 048
     Dates: start: 20060801, end: 20091009
  5. GLUCOSAMINE [Suspect]
     Indication: ARTHRALGIA
     Route: 065

REACTIONS (1)
  - LIVER DISORDER [None]
